FAERS Safety Report 9969623 (Version 2)
Quarter: 2014Q2

REPORT INFORMATION
  Report Type: Spontaneous
  Country: US (occurrence: None)
  Receive Date: 20140130
  Receipt Date: 20140501
  Transmission Date: 20141212
  Serious: No
  Sender: FDA-Public Use
  Company Number: PHEH2013US025409

PATIENT
  Age: 73 Year
  Sex: Female

DRUGS (2)
  1. ARCAPTA [Suspect]
  2. FLOVENT (FLUTICASONE PROPIONATE) [Concomitant]

REACTIONS (4)
  - Dysphonia [None]
  - Asthenia [None]
  - Dyspnoea [None]
  - Tremor [None]
